FAERS Safety Report 13112106 (Version 1)
Quarter: 2017Q1

REPORT INFORMATION
  Report Type: Spontaneous
  Country: GB (occurrence: GB)
  Receive Date: 20170113
  Receipt Date: 20170113
  Transmission Date: 20170428
  Serious: Yes (Other)
  Sender: FDA-Public Use
  Company Number: GB-ACCORD-047232

PATIENT
  Age: 34 Year
  Sex: Male
  Weight: 72 kg

DRUGS (2)
  1. AMITRIPTYLINE [Concomitant]
     Active Substance: AMITRIPTYLINE
  2. SERTRALINE [Suspect]
     Active Substance: SERTRALINE HYDROCHLORIDE
     Indication: DEPRESSION
     Route: 048
     Dates: start: 20160410, end: 20161130

REACTIONS (11)
  - Abdominal pain upper [Recovered/Resolved]
  - Pain [Recovered/Resolved]
  - Gastrointestinal pain [Recovered/Resolved with Sequelae]
  - Constipation [Recovered/Resolved]
  - Diarrhoea [Recovered/Resolved]
  - Flatulence [Recovered/Resolved]
  - Influenza like illness [Recovered/Resolved]
  - Eructation [Recovered/Resolved]
  - Headache [Recovered/Resolved]
  - Asthenia [Recovered/Resolved]
  - Abdominal distension [Recovered/Resolved]

NARRATIVE: CASE EVENT DATE: 20160831
